FAERS Safety Report 8149257 (Version 4)
Quarter: 2013Q2

REPORT INFORMATION
  Report Type: Spontaneous
  Country: US (occurrence: US)
  Receive Date: 20110922
  Receipt Date: 20130620
  Transmission Date: 20140414
  Serious: Yes (Other)
  Sender: FDA-Public Use
  Company Number: US-ASTRAZENECA-2011SE12536

PATIENT
  Age: 62 Year
  Sex: Male

DRUGS (6)
  1. SEROQUEL [Suspect]
     Route: 048
     Dates: start: 20040217
  2. ACCUPRIL [Concomitant]
     Dates: start: 20030714
  3. TRIAMT/HCTZ [Concomitant]
     Dosage: 37.5/25
     Dates: start: 20030803
  4. WELLBUTRIN SR [Concomitant]
     Dates: start: 20030823
  5. LIPITOR [Concomitant]
     Dates: start: 20031022
  6. ZYPREXA [Concomitant]
     Dates: start: 20030918

REACTIONS (4)
  - Pancreatitis [Unknown]
  - Diabetic coma [Unknown]
  - Diabetic hyperosmolar coma [Unknown]
  - Type 2 diabetes mellitus [Unknown]
